FAERS Safety Report 10220453 (Version 1)
Quarter: 2014Q2

REPORT INFORMATION
  Report Type: Spontaneous
  Country: US (occurrence: US)
  Receive Date: 20140606
  Receipt Date: 20140606
  Transmission Date: 20141212
  Serious: Yes (Hospitalization)
  Sender: FDA-Public Use
  Company Number: US-009507513-1405USA015493

PATIENT
  Sex: Female

DRUGS (4)
  1. COZAAR [Suspect]
     Dosage: UNK
     Route: 048
  2. EXFORGE [Concomitant]
     Dosage: UNK
  3. NORVASC [Concomitant]
     Dosage: UNK
  4. VALSARTAN [Concomitant]
     Dosage: UNK

REACTIONS (4)
  - Malaise [Unknown]
  - Malaise [Unknown]
  - Drug ineffective [Unknown]
  - Malaise [Unknown]
